FAERS Safety Report 13942572 (Version 1)
Quarter: 2017Q3

REPORT INFORMATION
  Report Type: Spontaneous
  Country: US (occurrence: US)
  Receive Date: 20170906
  Receipt Date: 20170906
  Transmission Date: 20171127
  Serious: Yes (Other)
  Sender: FDA-Public Use
  Company Number: US-BIOGEN-2017BI00452584

PATIENT
  Sex: Female

DRUGS (1)
  1. AVONEX [Suspect]
     Active Substance: INTERFERON BETA-1A
     Indication: MULTIPLE SCLEROSIS
     Route: 065
     Dates: start: 20140828

REACTIONS (5)
  - Peripheral swelling [Unknown]
  - Hip fracture [Unknown]
  - Infected bite [Not Recovered/Not Resolved]
  - Femur fracture [Unknown]
  - Erythema [Unknown]
